FAERS Safety Report 5512464-0 (Version None)
Quarter: 2007Q4

REPORT INFORMATION
  Report Type: 
  Country: None (occurrence: None)
  Receive Date: 20071112
  Receipt Date: 20070301
  Transmission Date: 20080405
  Serious: No
  Sender: FDA-Public Use
  Company Number: A0641493A

PATIENT
  Age: 70 Year
  Sex: Female

DRUGS (6)
  1. AVANDAMET [Suspect]
     Dosage: 1TAB PER DAY
     Route: 048
     Dates: start: 20070201
  2. SYNTHROID [Concomitant]
  3. LOPRESSOR [Concomitant]
  4. LOVASTATIN [Concomitant]
  5. LEXAPRO [Concomitant]
  6. CHEMOTHERAPY [Concomitant]

REACTIONS (3)
  - CARDIAC FLUTTER [None]
  - NERVOUSNESS [None]
  - PALPITATIONS [None]
